FAERS Safety Report 5633550-0 (Version None)
Quarter: 2008Q1

REPORT INFORMATION
  Report Type: 
  Country: None (occurrence: None)
  Receive Date: 20080221
  Receipt Date: 20080211
  Transmission Date: 20080703
  Serious: Yes (Death, Hospitalization)
  Sender: FDA-Public Use
  Company Number: FR-PFIZER INC-2008013345

PATIENT
  Sex: Male

DRUGS (6)
  1. TAHOR [Suspect]
     Route: 048
  2. CORDARONE [Suspect]
     Route: 048
     Dates: start: 20050101, end: 20070904
  3. NEXIUM [Suspect]
     Route: 048
  4. TRIATEC [Suspect]
     Route: 048
  5. PREVISCAN [Suspect]
     Route: 048
  6. TRINITRINE [Concomitant]

REACTIONS (1)
  - INTERSTITIAL LUNG DISEASE [None]
